FAERS Safety Report 8888891 (Version 1)
Quarter: 2012Q4

REPORT INFORMATION
  Report Type: 
  Country: US (occurrence: US)
  Receive Date: 20121106
  Receipt Date: 20121106
  Transmission Date: 20130627
  Serious: Yes (Other)
  Sender: FDA-Public Use
  Company Number: PHEH2012US017084

PATIENT
  Age: 43 Year
  Sex: Female

DRUGS (1)
  1. GILENYA [Suspect]
     Indication: MULTIPLE SCLEROSIS
     Dosage: 0.5 mg, QD
     Route: 048
     Dates: start: 20120829, end: 20121101

REACTIONS (7)
  - Hypersensitivity [Recovered/Resolved]
  - Rash [Recovered/Resolved]
  - Strabismus [Recovered/Resolved]
  - Dry mouth [Unknown]
  - Skin burning sensation [Recovered/Resolved]
  - Migraine [Recovered/Resolved]
  - Eye pain [Recovered/Resolved]
